FAERS Safety Report 12806628 (Version 1)
Quarter: 2016Q4

REPORT INFORMATION
  Report Type: Spontaneous
  Country: DE (occurrence: DE)
  Receive Date: 20161004
  Receipt Date: 20161004
  Transmission Date: 20170207
  Serious: Yes (Hospitalization)
  Sender: FDA-Public Use
  Company Number: DE-SHIRE-DE201613986

PATIENT
  Age: 7 Year
  Sex: Female
  Weight: 28 kg

DRUGS (1)
  1. ELVANSE [Suspect]
     Active Substance: LISDEXAMFETAMINE DIMESYLATE
     Indication: PRODUCT USED FOR UNKNOWN INDICATION
     Dosage: 30 MG, UNKNOWN
     Route: 048

REACTIONS (4)
  - Aggression [Unknown]
  - Screaming [Unknown]
  - Condition aggravated [Unknown]
  - Distractibility [Unknown]
